FAERS Safety Report 14617271 (Version 4)
Quarter: 2018Q2

REPORT INFORMATION
  Report Type: Spontaneous
  Country: JP (occurrence: JP)
  Receive Date: 20180309
  Receipt Date: 20180621
  Transmission Date: 20180711
  Serious: Yes (Hospitalization, Other)
  Sender: FDA-Public Use
  Company Number: JP-009507513-1704JPN001844J

PATIENT
  Age: 59 Year
  Sex: Male
  Weight: 52 kg

DRUGS (10)
  1. MAINTATE [Concomitant]
     Active Substance: BISOPROLOL FUMARATE
     Dosage: UNK
     Route: 065
  2. LOXONIN [Concomitant]
     Active Substance: LOXOPROFEN SODIUM
     Indication: LUNG ADENOCARCINOMA
     Dosage: 60.0 MG, TID
     Route: 048
  3. OXYCONTIN [Concomitant]
     Active Substance: OXYCODONE HYDROCHLORIDE
     Indication: LUNG ADENOCARCINOMA
     Dosage: 5.0 MG, BID
     Route: 048
  4. MAGNESIUM OXIDE. [Concomitant]
     Active Substance: MAGNESIUM OXIDE
     Dosage: 330.0 MG, TID
     Route: 048
  5. TRYPTANOL [Concomitant]
     Active Substance: AMITRIPTYLINE
     Indication: LUNG ADENOCARCINOMA
     Dosage: 10 MG, QD
     Route: 048
  6. KEYTRUDA [Suspect]
     Active Substance: PEMBROLIZUMAB
     Indication: LUNG ADENOCARCINOMA
     Dosage: 200 MG, Q3W
     Route: 041
     Dates: start: 20170417, end: 20180313
  7. AMLODIN [Concomitant]
     Active Substance: AMLODIPINE BESYLATE
     Dosage: UNK
     Route: 065
  8. TEGRETOL [Concomitant]
     Active Substance: CARBAMAZEPINE
     Indication: LUNG ADENOCARCINOMA
     Dosage: 100.0 MG, BID
     Route: 048
  9. DENOTAS [Concomitant]
     Active Substance: CALCIUM CARBONATE\CHOLECALCIFEROL\MAGNESIUM CARBONATE
     Indication: LUNG ADENOCARCINOMA
     Dosage: 2.0 DF, QD
     Route: 048
  10. MYSLEE [Concomitant]
     Active Substance: ZOLPIDEM TARTRATE
     Dosage: UNK
     Route: 065

REACTIONS (5)
  - Cerebral infarction [Recovered/Resolved]
  - Cheilitis [Not Recovered/Not Resolved]
  - Dysgeusia [Recovered/Resolved]
  - Rash [Not Recovered/Not Resolved]
  - Pyrexia [Recovered/Resolved]

NARRATIVE: CASE EVENT DATE: 20170417
